FAERS Safety Report 5826824-1 (Version None)
Quarter: 2008Q3

REPORT INFORMATION
  Report Type: 
  Country: None (occurrence: None)
  Receive Date: 20080725
  Receipt Date: 20080711
  Transmission Date: 20090109
  Serious: Yes (Other)
  Sender: FDA-Public Use
  Company Number: 2008S1012490

PATIENT
  Sex: Female

DRUGS (1)
  1. ESTRADIOL TRANSDERMAL SYSTEM [Suspect]

REACTIONS (15)
  - ABDOMINAL DISTENSION [None]
  - ANGER [None]
  - ANXIETY [None]
  - BRUXISM [None]
  - CHILLS [None]
  - CRYING [None]
  - DEPRESSION [None]
  - DRY EYE [None]
  - GASTRIC DISORDER [None]
  - HEADACHE [None]
  - HYPERHIDROSIS [None]
  - NERVOUSNESS [None]
  - PANIC DISORDER [None]
  - SKIN EXFOLIATION [None]
  - SUICIDAL IDEATION [None]
